FAERS Safety Report 5407234-8 (Version None)
Quarter: 2007Q3

REPORT INFORMATION
  Report Type: 
  Country: None (occurrence: None)
  Receive Date: 20070807
  Receipt Date: 20070802
  Transmission Date: 20080115
  Serious: Yes (Hospitalization)
  Sender: FDA-Public Use
  Company Number: A0667905A

PATIENT
  Age: 72 Year
  Sex: Male

DRUGS (15)
  1. ADVAIR DISKUS 100/50 [Suspect]
     Indication: CHRONIC OBSTRUCTIVE PULMONARY DISEASE
     Dosage: 1PUFF TWICE PER DAY
     Route: 055
     Dates: start: 20060101, end: 20061201
  2. AVODART [Suspect]
     Dosage: .5MG PER DAY
     Route: 048
     Dates: start: 20060101, end: 20060101
  3. FLOMAX [Concomitant]
  4. POTASSIUM CHLORIDE [Concomitant]
  5. ALTACE [Concomitant]
  6. LEXAPRO [Concomitant]
  7. DIGOXIN [Concomitant]
  8. ASPIRIN [Concomitant]
  9. LASIX [Concomitant]
  10. FLOMAX [Concomitant]
  11. LIPITOR [Concomitant]
  12. COUMADIN [Concomitant]
  13. NEBULIZER [Concomitant]
  14. SAW PALMETTO [Concomitant]
  15. GAS-X [Concomitant]

REACTIONS (4)
  - DEPRESSION [None]
  - DYSPHONIA [None]
  - DYSPNOEA [None]
  - RHINORRHOEA [None]
